FAERS Safety Report 8081480-X (Version None)
Quarter: 2012Q1

REPORT INFORMATION
  Report Type: 
  Country: None (occurrence: None)
  Receive Date: 20120130
  Receipt Date: 20120116
  Transmission Date: 20120608
  Serious: Yes (Hospitalization)
  Sender: FDA-Public Use
  Company Number: PHHO2007DE12408

PATIENT
  Sex: Male
  Weight: 80 kg

DRUGS (1)
  1. IMATINIB MESYLATE [Suspect]
     Indication: GASTROINTESTINAL STROMAL TUMOUR
     Dosage: 400 MG, QD
     Route: 048
     Dates: start: 20050604, end: 20060125

REACTIONS (2)
  - SUBCUTANEOUS NODULE [None]
  - LYMPHOPROLIFERATIVE DISORDER [None]
